FAERS Safety Report 9140230 (Version 1)
Quarter: 2013Q1

REPORT INFORMATION
  Report Type: Spontaneous
  Country: GB (occurrence: GB)
  Receive Date: 20130305
  Receipt Date: 20130305
  Transmission Date: 20140127
  Serious: Yes (Other)
  Sender: FDA-Public Use
  Company Number: GB-TEVA-109382ISR

PATIENT
  Age: 57 Year
  Sex: Female

DRUGS (2)
  1. LAMOTRIGINE [Suspect]
     Indication: CONVULSION
     Dosage: 75 MILLIGRAM DAILY;
  2. VALPROIC ACID [Interacting]
     Indication: CONVULSION
     Dosage: 2400 MILLIGRAM DAILY; AND 1 GRAM AT NIGHT.

REACTIONS (2)
  - Interstitial lung disease [Recovered/Resolved]
  - Drug interaction [Recovered/Resolved]
